FAERS Safety Report 8432749-8 (Version None)
Quarter: 2012Q2

REPORT INFORMATION
  Report Type: 
  Country: None (occurrence: None)
  Receive Date: 20120606
  Receipt Date: 20120525
  Transmission Date: 20120825
  Serious: Yes (Other)
  Sender: FDA-Public Use
  Company Number: IT-GDP-12413852

PATIENT
  Sex: Female

DRUGS (5)
  1. AMITRIPTYLINE HYDROCHLORIDE [Concomitant]
  2. ATENOLOL + CLORTALIDONA [Concomitant]
  3. METRONIDAZOLE [Suspect]
     Indication: DERMATITIS
     Dosage: (1 DF BID TOPICAL)
     Route: 061
     Dates: start: 20120510, end: 20120512
  4. CETAPHIL RESTORADERM CLEANSER (CETYL ALCOHOL; PROPYLENE GLYCOL;STEARYL [Suspect]
     Indication: THERAPEUTIC SKIN CARE TOPICAL
     Dosage: (1 DF QD TOPICAL)
     Route: 061
     Dates: start: 20120510, end: 20120512
  5. CETAPHIL RESTORADERM CLEANSER (CETYL ALCOHOL; PROPYLENE GLYCOL;STEARYL [Suspect]
     Indication: SKIN DISORDER
     Dosage: (1 DF QD TOPICAL)
     Route: 061
     Dates: start: 20120510, end: 20120512

REACTIONS (4)
  - DERMATITIS CONTACT [None]
  - APPLICATION SITE EXFOLIATION [None]
  - APPLICATION SITE ERYTHEMA [None]
  - APPLICATION SITE DERMATITIS [None]
